FAERS Safety Report 12010314 (Version 9)
Quarter: 2019Q3

REPORT INFORMATION
  Report Type: Spontaneous
  Country: US (occurrence: US)
  Receive Date: 20160205
  Receipt Date: 20190926
  Transmission Date: 20191004
  Serious: Yes (Hospitalization, Other)
  Sender: FDA-Public Use
  Company Number: US-PFIZER INC-2016060297

PATIENT
  Age: 58 Year
  Sex: Female
  Weight: 111 kg

DRUGS (11)
  1. FLUOXETINE HCL [Concomitant]
     Active Substance: FLUOXETINE HYDROCHLORIDE
     Indication: POST-TRAUMATIC STRESS DISORDER
     Dosage: 20 MG, 1X/DAY
  2. FLUOXETINE HCL [Concomitant]
     Active Substance: FLUOXETINE HYDROCHLORIDE
     Indication: DEPRESSION
  3. COZAAR [Concomitant]
     Active Substance: LOSARTAN POTASSIUM
     Indication: BLOOD PRESSURE ABNORMAL
     Dosage: 100 MG, 1X/DAY
  4. LYRICA [Suspect]
     Active Substance: PREGABALIN
     Indication: NEUROPATHY PERIPHERAL
     Dosage: UNK (WENT BACK ON THE PREGABALIN)
  5. AMLODIPINE BESILATE [Concomitant]
     Active Substance: AMLODIPINE BESYLATE
     Indication: BLOOD PRESSURE ABNORMAL
     Dosage: 2.5 MG, DAILY
  6. CLONIDINE. [Concomitant]
     Active Substance: CLONIDINE
     Indication: BLOOD PRESSURE ABNORMAL
     Dosage: 0.1 MG, UNK
  7. FENTANYL. [Concomitant]
     Active Substance: FENTANYL
     Dosage: UNK
  8. LEVOTHYROXINE. [Concomitant]
     Active Substance: LEVOTHYROXINE
     Indication: HYPOTHYROIDISM
     Dosage: UNK
  9. FOLIC ACID. [Concomitant]
     Active Substance: FOLIC ACID
     Dosage: 1 MG, 2X/DAY
  10. DILAUDID [Concomitant]
     Active Substance: HYDROMORPHONE HYDROCHLORIDE
     Dosage: UNK
  11. LYRICA [Suspect]
     Active Substance: PREGABALIN
     Indication: FIBROMYALGIA
     Dosage: 150 MG, 3X/DAY
     Route: 048

REACTIONS (18)
  - Thrombosis [Unknown]
  - Haematoma [Unknown]
  - Pulmonary mass [Unknown]
  - Malaise [Unknown]
  - Dyspnoea [Unknown]
  - Intentional product misuse [Unknown]
  - Nephropathy [Unknown]
  - Feeling abnormal [Recovered/Resolved]
  - Eating disorder [Unknown]
  - Acute psychosis [Recovered/Resolved]
  - Cardiac aneurysm [Unknown]
  - Hyperhidrosis [Recovered/Resolved]
  - Palpitations [Unknown]
  - Product dose omission [Unknown]
  - Brain injury [Unknown]
  - Condition aggravated [Unknown]
  - Fatigue [Unknown]
  - Disease recurrence [Unknown]

NARRATIVE: CASE EVENT DATE: 2014
